FAERS Safety Report 7119570-8 (Version None)
Quarter: 2010Q4

REPORT INFORMATION
  Report Type: 
  Country: None (occurrence: None)
  Receive Date: 20101123
  Receipt Date: 20101111
  Transmission Date: 20110411
  Serious: Yes (Hospitalization)
  Sender: FDA-Public Use
  Company Number: US-CELGENEUS-163-21880-10111668

PATIENT
  Sex: Female

DRUGS (3)
  1. REVLIMID [Suspect]
     Route: 048
     Dates: start: 20090601, end: 20090101
  2. REVLIMID [Suspect]
     Route: 048
     Dates: start: 20100101
  3. REVLIMID [Suspect]
     Route: 048
     Dates: start: 20100624

REACTIONS (1)
  - VASCULAR OCCLUSION [None]
